FAERS Safety Report 20804041 (Version 5)
Quarter: 2023Q2

REPORT INFORMATION
  Report Type: Spontaneous
  Country: US (occurrence: US)
  Receive Date: 20220509
  Receipt Date: 20230425
  Transmission Date: 20230722
  Serious: Yes (Other)
  Sender: FDA-Public Use
  Company Number: US-PFIZER INC-202200186432

PATIENT
  Age: 76 Year
  Sex: Female

DRUGS (2)
  1. XELJANZ XR [Suspect]
     Active Substance: TOFACITINIB CITRATE
     Indication: Colitis ulcerative
     Dosage: 11 MG
     Dates: start: 20200819
  2. XELJANZ XR [Suspect]
     Active Substance: TOFACITINIB CITRATE
     Indication: Rheumatoid arthritis
     Dosage: 11 MG
     Dates: start: 20221119, end: 202303

REACTIONS (7)
  - Knee arthroplasty [Unknown]
  - Dizziness [Unknown]
  - Vertigo [Unknown]
  - Fatigue [Not Recovered/Not Resolved]
  - COVID-19 [Unknown]
  - Pyrexia [Unknown]
  - Sciatic nerve neuropathy [Unknown]

NARRATIVE: CASE EVENT DATE: 20220101
